FAERS Safety Report 7372829-1 (Version None)
Quarter: 2011Q1

REPORT INFORMATION
  Report Type: 
  Country: None (occurrence: None)
  Receive Date: 20110324
  Receipt Date: 20110321
  Transmission Date: 20110831
  Serious: Yes (Life-Threatening, Hospitalization)
  Sender: FDA-Public Use
  Company Number: ES-PFIZER INC-2010084858

PATIENT
  Age: 69 Year
  Sex: Male

DRUGS (6)
  1. ALDACTONE [Suspect]
     Dosage: 150 MG, 1X/DAY
     Route: 048
     Dates: start: 20100216, end: 20100306
  2. TRAZODONE HCL [Interacting]
     Dosage: 100 MG, 1X/DAY
     Route: 048
     Dates: end: 20100306
  3. LANTANON [Interacting]
     Dosage: 10 MG, 1X/DAY
     Route: 048
     Dates: start: 20100205, end: 20100306
  4. DUPHALAC [Concomitant]
     Indication: CHRONIC HEPATITIS
     Dosage: 30 ML, 1X/DAY
     Route: 048
  5. SEGURIL [Interacting]
     Indication: CHRONIC HEPATITIS
     Dosage: 40 MG, 1X/DAY
     Route: 048
     Dates: start: 20100216, end: 20100306
  6. OMEPRAZOLE [Concomitant]
     Dosage: 40 MG, 1X/DAY
     Route: 048

REACTIONS (2)
  - HEPATIC ENCEPHALOPATHY [None]
  - DRUG INTERACTION [None]
